FAERS Safety Report 6246085-1 (Version None)
Quarter: 2009Q2

REPORT INFORMATION
  Report Type: 
  Country: None (occurrence: None)
  Receive Date: 20090626
  Receipt Date: 20090205
  Transmission Date: 20091009
  Serious: No
  Sender: FDA-Public Use
  Company Number: A0767163A

PATIENT
  Sex: Female

DRUGS (4)
  1. IMITREX [Suspect]
     Indication: MIGRAINE
     Route: 048
     Dates: start: 19800101, end: 19900101
  2. IMITREX [Suspect]
     Route: 042
  3. CHEMOTHERAPY [Concomitant]
     Route: 048
  4. COUMADIN [Concomitant]

REACTIONS (1)
  - DRUG INEFFECTIVE [None]
